FAERS Safety Report 5228976-3 (Version None)
Quarter: 2007Q1

REPORT INFORMATION
  Report Type: 
  Country: None (occurrence: None)
  Receive Date: 20061201
  Receipt Date: 20060822
  Transmission Date: 20070707
  Serious: No
  Sender: FDA-Public Use
  Company Number: US200606002652

PATIENT
  Age: 50 Year
  Sex: Female
  Weight: 72.6 kg

DRUGS (8)
  1. CYMBALTA [Suspect]
     Indication: FIBROMYALGIA
     Dosage: SEE IMAGE
     Route: 048
     Dates: start: 20050101, end: 20060101
  2. CYMBALTA [Suspect]
     Indication: FIBROMYALGIA
     Dosage: SEE IMAGE
     Route: 048
     Dates: start: 20060101, end: 20060815
  3. NEURONTIN [Concomitant]
  4. BUSPAR [Concomitant]
  5. XANAX [Concomitant]
  6. SYNTHROID [Concomitant]
  7. ZELNORM [Concomitant]
  8. PRILOSEC [Concomitant]

REACTIONS (3)
  - CHEST DISCOMFORT [None]
  - DYSPNOEA [None]
  - GASTRIC DISORDER [None]
